FAERS Safety Report 18120964 (Version 1)
Quarter: 2020Q3

REPORT INFORMATION
  Report Type: Spontaneous
  Country: FR (occurrence: FR)
  Receive Date: 20200807
  Receipt Date: 20200807
  Transmission Date: 20201103
  Serious: Yes (Other)
  Sender: FDA-Public Use
  Company Number: FR-AUROBINDO-AUR-APL-2019-107524

PATIENT
  Age: 79 Year
  Sex: Female

DRUGS (14)
  1. CLOPIDOGREL [Interacting]
     Active Substance: CLOPIDOGREL BISULFATE
     Indication: PROPHYLAXIS
  2. WARFARIN [Interacting]
     Active Substance: WARFARIN
     Indication: PROPHYLAXIS
  3. CLOPIDOGREL [Interacting]
     Active Substance: CLOPIDOGREL BISULFATE
     Indication: PULMONARY EMBOLISM
     Dosage: UNK
     Route: 065
  4. ABACAVIR+LAMIVUDINE [Suspect]
     Active Substance: ABACAVIR SULFATE\LAMIVUDINE
     Dosage: UNK
     Route: 065
  5. SIMVASTATIN. [Interacting]
     Active Substance: SIMVASTATIN
     Indication: ACUTE CORONARY SYNDROME
  6. SIMVASTATIN. [Interacting]
     Active Substance: SIMVASTATIN
     Indication: ARTERIAL THROMBOSIS
  7. WARFARIN [Interacting]
     Active Substance: WARFARIN
     Indication: ARTERIAL THROMBOSIS
  8. SIMVASTATIN. [Interacting]
     Active Substance: SIMVASTATIN
     Indication: PROPHYLAXIS
  9. WARFARIN [Interacting]
     Active Substance: WARFARIN
     Indication: ACUTE CORONARY SYNDROME
     Dosage: UNK
     Route: 065
  10. SIMVASTATIN. [Interacting]
     Active Substance: SIMVASTATIN
     Indication: PULMONARY EMBOLISM
     Dosage: UNK
     Route: 065
  11. CLOPIDOGREL [Interacting]
     Active Substance: CLOPIDOGREL BISULFATE
     Indication: ACUTE CORONARY SYNDROME
  12. CLOPIDOGREL [Interacting]
     Active Substance: CLOPIDOGREL BISULFATE
     Indication: ARTERIAL THROMBOSIS
  13. WARFARIN [Interacting]
     Active Substance: WARFARIN
     Indication: PULMONARY EMBOLISM
  14. RILPIVIRINE [Interacting]
     Active Substance: RILPIVIRINE
     Indication: HIV INFECTION
     Dosage: UNK
     Route: 065

REACTIONS (2)
  - Drug interaction [Unknown]
  - Virologic failure [Unknown]
